FAERS Safety Report 5063200-6 (Version None)
Quarter: 2006Q3

REPORT INFORMATION
  Report Type: 
  Country: None (occurrence: None)
  Receive Date: 20060724
  Receipt Date: 20060706
  Transmission Date: 20061208
  Serious: Yes (Other)
  Sender: FDA-Public Use
  Company Number: 2005119923

PATIENT
  Age: 60 Year
  Sex: Female
  Weight: 90.7194 kg

DRUGS (5)
  1. ROGAINE [Suspect]
     Indication: HYPOTRICHOSIS
     Dosage: 1 ML TWICE DAILY, TOPICAL
     Route: 061
     Dates: start: 20050815, end: 20060627
  2. ROGAINE [Suspect]
  3. GLYCOPYRRONIUM BROMIDE (GLYCOPYRRONIUM BROMIDE) [Concomitant]
  4. CONJUGATED ESTROGENS [Concomitant]
  5. ROSUVASTATIN                  (ROSUVASTATIN) [Concomitant]

REACTIONS (5)
  - ALOPECIA [None]
  - DRY SKIN [None]
  - HAIR TEXTURE ABNORMAL [None]
  - PRURITUS [None]
  - WEIGHT INCREASED [None]
